FAERS Safety Report 10630941 (Version 1)
Quarter: 2014Q4

REPORT INFORMATION
  Report Type: Spontaneous
  Country: US (occurrence: US)
  Receive Date: 20141205
  Receipt Date: 20141205
  Transmission Date: 20150529
  Serious: Yes (Hospitalization)
  Sender: FDA-Public Use
  Company Number: US-BRISTOL-MYERS SQUIBB COMPANY-21398896

PATIENT
  Age: 65 Year
  Sex: Female
  Weight: 72.56 kg

DRUGS (1)
  1. ELIQUIS [Suspect]
     Active Substance: APIXABAN
     Indication: CEREBROVASCULAR ACCIDENT PROPHYLAXIS
     Route: 048
     Dates: start: 201409, end: 20140913

REACTIONS (1)
  - Subdural haemorrhage [Recovered/Resolved]

NARRATIVE: CASE EVENT DATE: 20140913
